FAERS Safety Report 25499167 (Version 1)
Quarter: 2025Q3

REPORT INFORMATION
  Report Type: Spontaneous
  Country: GB (occurrence: GB)
  Receive Date: 20250701
  Receipt Date: 20250701
  Transmission Date: 20251020
  Serious: Yes (Other)
  Sender: AZURITY PHARMACEUTICALS
  Company Number: GB-AZURITY PHARMACEUTICALS, INC.-AZR202506-001724

PATIENT
  Age: 47 Year
  Sex: Female

DRUGS (9)
  1. METHYLPREDNISOLONE ACETATE [Suspect]
     Active Substance: METHYLPREDNISOLONE ACETATE
     Indication: Rheumatoid arthritis
     Route: 042
  2. FILGOTINIB [Suspect]
     Active Substance: FILGOTINIB
     Indication: Rheumatoid arthritis
     Route: 065
  3. PREDNISOLONE [Concomitant]
     Active Substance: PREDNISOLONE
     Indication: Rheumatoid arthritis
     Route: 065
     Dates: start: 1998
  4. ADALIMUMAB [Concomitant]
     Active Substance: ADALIMUMAB
     Indication: Rheumatoid arthritis
     Route: 065
  5. RITUXIMAB [Concomitant]
     Active Substance: RITUXIMAB
     Indication: Rheumatoid arthritis
     Route: 065
  6. MEROPENEM [Concomitant]
     Active Substance: MEROPENEM
     Indication: Pyuria
     Route: 065
  7. TEMOCILLIN [Concomitant]
     Active Substance: TEMOCILLIN
     Indication: Pyuria
     Route: 065
  8. FLUCONAZOLE [Concomitant]
     Active Substance: FLUCONAZOLE
     Indication: Pyuria
     Route: 065
  9. GENTAMICIN [Concomitant]
     Active Substance: GENTAMICIN
     Indication: Pyuria
     Route: 065

REACTIONS (5)
  - Cystitis interstitial [Recovering/Resolving]
  - Bladder fibrosis [Recovering/Resolving]
  - Ureteric obstruction [Recovering/Resolving]
  - Renal abscess [Recovering/Resolving]
  - Ureaplasma infection [Recovering/Resolving]
